FAERS Safety Report 8619513-1 (Version None)
Quarter: 2012Q3

REPORT INFORMATION
  Report Type: 
  Country: None (occurrence: None)
  Receive Date: 20120824
  Receipt Date: 20120329
  Transmission Date: 20120928
  Serious: No
  Sender: FDA-Public Use
  Company Number: US-ASTRAZENECA-2012SE21379

PATIENT
  Age: 64 Year
  Sex: Female

DRUGS (1)
  1. SYMBICORT [Suspect]
     Dosage: UNKNOWN, UNKNOWN FREQUENCY
     Route: 055

REACTIONS (4)
  - BRONCHITIS [None]
  - OFF LABEL USE [None]
  - MALAISE [None]
  - ASTHMA [None]
